FAERS Safety Report 16713502 (Version 2)
Quarter: 2019Q4

REPORT INFORMATION
  Report Type: Report from Study
  Country: US (occurrence: US)
  Receive Date: 20190819
  Receipt Date: 20191007
  Transmission Date: 20200122
  Serious: No
  Sender: FDA-Public Use
  Company Number: US-SHIRE-US201926299

PATIENT
  Sex: Female
  Weight: 62.81 kg

DRUGS (1)
  1. GATTEX [Suspect]
     Active Substance: TEDUGLUTIDE\WATER
     Indication: SHORT-BOWEL SYNDROME
     Dosage: 0.314 MILLILITER, 1X/DAY:QD
     Route: 058
     Dates: start: 20190211

REACTIONS (2)
  - Off label use [Unknown]
  - Pancreatic enzymes increased [Unknown]
